FAERS Safety Report 22106115 (Version 2)
Quarter: 2023Q1

REPORT INFORMATION
  Report Type: Report from Study
  Country: DE (occurrence: DE)
  Receive Date: 20230317
  Receipt Date: 20230322
  Transmission Date: 20230418
  Serious: Yes (Hospitalization)
  Sender: FDA-Public Use
  Company Number: DE-SA-SAC20230313000028

PATIENT
  Age: 70 Year
  Sex: Female
  Weight: 47 kg

DRUGS (8)
  1. ISATUXIMAB [Suspect]
     Active Substance: ISATUXIMAB
     Indication: Plasma cell myeloma
     Dosage: 480 MG
     Route: 042
     Dates: start: 20191203, end: 20191203
  2. ISATUXIMAB [Suspect]
     Active Substance: ISATUXIMAB
     Dosage: 480 MG
     Route: 042
     Dates: start: 20230227, end: 20230227
  3. CARFILZOMIB [Suspect]
     Active Substance: CARFILZOMIB
     Indication: Plasma cell myeloma
     Dosage: 63.8 UG
     Route: 042
     Dates: start: 20191203, end: 20191203
  4. CARFILZOMIB [Suspect]
     Active Substance: CARFILZOMIB
     Dosage: 63.8 UG
     Route: 042
     Dates: start: 20230227, end: 20230227
  5. LENALIDOMIDE [Suspect]
     Active Substance: LENALIDOMIDE
     Indication: Plasma cell myeloma
     Dosage: 5 UG
     Route: 048
     Dates: start: 20191203, end: 20191203
  6. LENALIDOMIDE [Suspect]
     Active Substance: LENALIDOMIDE
     Dosage: 5 UG
     Route: 048
  7. DEXAMETHASONE [Concomitant]
     Active Substance: DEXAMETHASONE
     Indication: Plasma cell myeloma
     Dosage: 8 UG
     Route: 042
     Dates: start: 20191203, end: 20191203
  8. DEXAMETHASONE [Concomitant]
     Active Substance: DEXAMETHASONE
     Dosage: 8 UG
     Route: 042
     Dates: start: 20230227, end: 20230227

REACTIONS (1)
  - Infection [Recovered/Resolved]

NARRATIVE: CASE EVENT DATE: 20230307
